FAERS Safety Report 11742337 (Version 1)
Quarter: 2015Q4

REPORT INFORMATION
  Report Type: Spontaneous
  Country: None (occurrence: None)
  Receive Date: 20151113
  Receipt Date: 20151113
  Transmission Date: 20160304
  Serious: Yes (Hospitalization)
  Sender: FDA-Public Use
  Company Number: None

PATIENT
  Age: 38 Year
  Sex: Female
  Weight: 80 kg

DRUGS (6)
  1. BUPROPION XL 150MG MYLAN [Suspect]
     Active Substance: BUPROPION
     Indication: MAJOR DEPRESSION
     Route: 048
  2. TRAZODONE [Concomitant]
     Active Substance: TRAZODONE HYDROCHLORIDE
  3. ALBUTEROL. [Concomitant]
     Active Substance: ALBUTEROL
  4. FERROUS SULFATE [Concomitant]
     Active Substance: FERROUS SULFATE\FERROUS SULFATE, DRIED
  5. ZANTAC [Concomitant]
     Active Substance: RANITIDINE HYDROCHLORIDE
  6. DULERA [Concomitant]
     Active Substance: FORMOTEROL FUMARATE DIHYDRATE\MOMETASONE FUROATE

REACTIONS (3)
  - Seizure [None]
  - Tremor [None]
  - Unresponsive to stimuli [None]

NARRATIVE: CASE EVENT DATE: 20151111
